FAERS Safety Report 11781968 (Version 2)
Quarter: 2016Q1

REPORT INFORMATION
  Report Type: Report from Study
  Country: AU (occurrence: AU)
  Receive Date: 20151126
  Receipt Date: 20160118
  Transmission Date: 20160525
  Serious: Yes (Death, Hospitalization, Other)
  Sender: FDA-Public Use
  Company Number: AU-BRISTOL-MYERS SQUIBB COMPANY-BMS-2015-081755

PATIENT
  Sex: Male
  Weight: 75 kg

DRUGS (1)
  1. NIVOLUMAB [Suspect]
     Active Substance: NIVOLUMAB
     Indication: LUNG ADENOCARCINOMA
     Dosage: 215 MG, UNK
     Route: 042
     Dates: start: 20150805, end: 20150805

REACTIONS (4)
  - Renal failure [Unknown]
  - Hepatic failure [Unknown]
  - Malignant neoplasm progression [Fatal]
  - Urosepsis [Fatal]
